FAERS Safety Report 23341898 (Version 4)
Quarter: 2025Q4

REPORT INFORMATION
  Report Type: Report from Study
  Country: US (occurrence: US)
  Receive Date: 20231227
  Receipt Date: 20251128
  Transmission Date: 20260118
  Serious: Yes (Hospitalization, Other)
  Sender: SANDOZ
  Company Number: US-002147023-NVSC2023US136946

PATIENT
  Sex: Female

DRUGS (6)
  1. LAMICTAL [Suspect]
     Active Substance: LAMOTRIGINE
     Indication: Product used for unknown indication
     Dosage: UNK
     Route: 065
  2. TREPROSTINIL [Suspect]
     Active Substance: TREPROSTINIL
     Dosage: 0.8 MG/ML
     Route: 041
  3. TREPROSTINIL [Suspect]
     Active Substance: TREPROSTINIL
     Indication: Pulmonary arterial hypertension
     Dosage: 152 NG/KG/MIN, CONT
     Route: 042
     Dates: start: 20210819
  4. TREPROSTINIL [Suspect]
     Active Substance: TREPROSTINIL
     Dosage: 152 NG/KG/MIN, CONT
     Route: 042
     Dates: start: 202302
  5. TREPROSTINIL [Suspect]
     Active Substance: TREPROSTINIL
     Dosage: 30NG/KG/MIN, CONTINUOUS,  0.15MG/ML
     Route: 042
     Dates: start: 202108
  6. TADALAFIL [Concomitant]
     Active Substance: TADALAFIL
     Indication: Product used for unknown indication
     Route: 065

REACTIONS (17)
  - Fluid retention [Not Recovered/Not Resolved]
  - Condition aggravated [Unknown]
  - Pneumonia [Unknown]
  - Acute kidney injury [Unknown]
  - Influenza like illness [Unknown]
  - Rhinorrhoea [Unknown]
  - Dehydration [Unknown]
  - Neck pain [Unknown]
  - Joint swelling [Unknown]
  - Weight increased [Unknown]
  - Peripheral swelling [Unknown]
  - Blood iron decreased [Unknown]
  - Fatigue [Unknown]
  - Dyspnoea [Unknown]
  - Pain in extremity [Unknown]
  - Diarrhoea [Unknown]
  - Asthenia [Not Recovered/Not Resolved]
